FAERS Safety Report 8029833-X (Version None)
Quarter: 2011Q4

REPORT INFORMATION
  Report Type: 
  Country: None (occurrence: None)
  Receive Date: 20111130
  Receipt Date: 20110622
  Transmission Date: 20120403
  Serious: Yes (Hospitalization)
  Sender: FDA-Public Use
  Company Number: US200911007306

PATIENT
  Age: 60 Year
  Sex: Male
  Weight: 83.9 kg

DRUGS (13)
  1. METFORMIN HCL [Concomitant]
  2. LISINOPRIL [Concomitant]
  3. ASPIRIN [Concomitant]
  4. CYMBALTA [Concomitant]
  5. BYETTA [Suspect]
     Indication: DIABETES MELLITUS
     Dosage: 5 UG
     Dates: start: 20051031, end: 20090302
  6. VYTORIN [Concomitant]
  7. MOBIC [Concomitant]
  8. REGLAN [Concomitant]
  9. EXENATIDE PEN, DISPOSABLE DEVICE (EXENATIDE PEN ) PEN,DISPOSABLE [Concomitant]
  10. PLAVIX [Concomitant]
  11. PRILOSEC [Concomitant]
  12. ACTOS /AUS/ (PIOGLITAZONE HYDROCHLORIDE) [Concomitant]
  13. GLIPIZIDE [Concomitant]

REACTIONS (3)
  - RENAL INJURY [None]
  - PANCREATITIS [None]
  - PANCREATITIS ACUTE [None]
